FAERS Safety Report 4429048-8 (Version None)
Quarter: 2004Q3

REPORT INFORMATION
  Report Type: 
  Country: None (occurrence: None)
  Receive Date: 20040726
  Receipt Date: 20040308
  Transmission Date: 20050211
  Serious: No
  Sender: FDA-Public Use
  Company Number: USA040361403

PATIENT
  Age: 73 Year
  Sex: Female

DRUGS (2)
  1. FORTEO [Suspect]
     Indication: OSTEOPOROSIS
     Dosage: 20 UG/1 DAY
     Dates: start: 20031101
  2. PREMARIN [Concomitant]

REACTIONS (5)
  - ABDOMINAL DISTENSION [None]
  - FATIGUE [None]
  - FLUID RETENTION [None]
  - HYPERTROPHY BREAST [None]
  - OEDEMA PERIPHERAL [None]
